FAERS Safety Report 4471837-8 (Version None)
Quarter: 2004Q4

REPORT INFORMATION
  Report Type: 
  Country: None (occurrence: None)
  Receive Date: 20041007
  Receipt Date: 20040924
  Transmission Date: 20050328
  Serious: Yes (Other)
  Sender: FDA-Public Use
  Company Number: 2004072676

PATIENT
  Age: 22 Year
  Sex: Female

DRUGS (6)
  1. SILDENAFIL (SILDENAFIL) [Suspect]
     Indication: PULMONARY HYPERTENSION
     Dosage: 150 MG (50 MG, 1 D), ORAL
     Route: 048
  2. DILTIAZEM [Suspect]
     Indication: PULMONARY HYPERTENSION
     Dosage: 60 MG ( 1 D)
  3. ARGININE          (ARGININE) [Suspect]
     Indication: PULMONARY HYPERTENSION
     Dosage: 3 GRAM (1 D)
  4. OXYGEN [Concomitant]
  5. NIFEDIPINE [Concomitant]
  6. WARFARIN SODIUM [Concomitant]

REACTIONS (16)
  - BLOOD PRESSURE SYSTOLIC DECREASED [None]
  - BLOOD URIC ACID INCREASED [None]
  - CAESAREAN SECTION [None]
  - CYANOSIS [None]
  - FAILED TRIAL OF LABOUR [None]
  - LABOUR INDUCTION [None]
  - MATERNAL DRUGS AFFECTING FOETUS [None]
  - OEDEMA PERIPHERAL [None]
  - PLATELET COUNT DECREASED [None]
  - POST PROCEDURAL PAIN [None]
  - PRE-ECLAMPSIA [None]
  - PROTEINURIA [None]
  - PULMONARY VASCULAR RESISTANCE ABNORMALITY [None]
  - RESPIRATORY RATE INCREASED [None]
  - UNEXPECTED THERAPEUTIC DRUG EFFECT [None]
  - VASCULAR RESISTANCE SYSTEMIC DECREASED [None]
